FAERS Safety Report 16587192 (Version 2)
Quarter: 2019Q4

REPORT INFORMATION
  Report Type: Spontaneous
  Country: US (occurrence: US)
  Receive Date: 20190717
  Receipt Date: 20191002
  Transmission Date: 20200122
  Serious: No
  Sender: FDA-Public Use
  Company Number: US-SA-2019SA190531

PATIENT
  Age: 73 Year
  Sex: Female

DRUGS (1)
  1. LANTUS [Suspect]
     Active Substance: INSULIN GLARGINE
     Indication: TYPE 2 DIABETES MELLITUS
     Dosage: 30 U, QD
     Route: 065

REACTIONS (3)
  - Feeling abnormal [Unknown]
  - Visual impairment [Unknown]
  - Liquid product physical issue [Unknown]
